FAERS Safety Report 4269737-1 (Version None)
Quarter: 2004Q1

REPORT INFORMATION
  Report Type: 
  Country: None (occurrence: None)
  Receive Date: 20040107
  Receipt Date: 20031224
  Transmission Date: 20041129
  Serious: No
  Sender: FDA-Public Use
  Company Number: CART-10229

PATIENT
  Age: 46 Year
  Sex: Female

DRUGS (1)
  1. CARTICEL [Suspect]
     Indication: ARTHROPATHY
     Dosage: 1 NA ONE IS
     Dates: start: 19990512, end: 19990512

REACTIONS (2)
  - FAILURE OF IMPLANT [None]
  - LOCALISED OSTEOARTHRITIS [None]
